FAERS Safety Report 24412408 (Version 1)
Quarter: 2024Q4

REPORT INFORMATION
  Report Type: Spontaneous
  Country: US (occurrence: None)
  Receive Date: 20241008
  Receipt Date: 20241008
  Transmission Date: 20250115
  Serious: No
  Sender: Public
  Company Number: None

PATIENT
  Age: 68 Year
  Sex: Female

DRUGS (1)
  1. SKYRIZI [Suspect]
     Active Substance: RISANKIZUMAB-RZAA
     Dosage: OTHER FREQUENCY : EVERY8WEEKS;?
     Route: 058
     Dates: start: 202408

REACTIONS (8)
  - Dehydration [None]
  - Chest pain [None]
  - Chest discomfort [None]
  - Dizziness [None]
  - Short-bowel syndrome [None]
  - Ventricular dysfunction [None]
  - Cardiac disorder [None]
  - Heart rate increased [None]

NARRATIVE: CASE EVENT DATE: 20240807
